FAERS Safety Report 9343021 (Version 1)
Quarter: 2013Q2

REPORT INFORMATION
  Report Type: Spontaneous
  Country: SE (occurrence: SE)
  Receive Date: 20130611
  Receipt Date: 20130611
  Transmission Date: 20140414
  Serious: Yes (Other)
  Sender: FDA-Public Use
  Company Number: SE-009507513-1306SWE001997

PATIENT
  Age: 41 Year
  Sex: Female

DRUGS (18)
  1. VICTRELIS [Suspect]
     Indication: CHRONIC HEPATITIS C
     Dosage: 1.4 G, QD
     Route: 048
     Dates: start: 20130227, end: 20130307
  2. PEGASYS [Suspect]
     Indication: CHRONIC HEPATITIS C
     Dosage: UNK, QW
     Route: 058
     Dates: start: 20130125, end: 20130307
  3. COPEGUS [Suspect]
     Indication: CHRONIC HEPATITIS C
     Dosage: 1 G, QD
     Route: 048
     Dates: start: 20130125, end: 20130307
  4. CONCERTA [Concomitant]
  5. CONCERTA [Concomitant]
  6. CONCERTA [Concomitant]
  7. LEVAXIN [Concomitant]
  8. ZOLPIDEM TARTRATE [Concomitant]
  9. LORATADINE [Concomitant]
  10. PROPAVAN [Concomitant]
  11. BETAPRED (BETAMETHASONE SODIUM PHOSPHATE) [Concomitant]
  12. BEHEPAN [Concomitant]
  13. TAVEGYL [Concomitant]
  14. DUROFERON [Concomitant]
  15. XANOR [Concomitant]
  16. EPIPEN [Concomitant]
  17. EFEXOR DEPOT [Concomitant]
  18. IDEOS [Concomitant]

REACTIONS (10)
  - Oral mucosal blistering [Recovered/Resolved]
  - Lip swelling [Recovered/Resolved]
  - Pharyngeal oedema [Recovered/Resolved]
  - Face oedema [Recovered/Resolved]
  - Pain [Recovered/Resolved]
  - Pyrexia [Recovered/Resolved]
  - Stomatitis [Recovered/Resolved]
  - Myalgia [Recovered/Resolved]
  - Fatigue [Recovered/Resolved]
  - Rash [Recovered/Resolved]
